FAERS Safety Report 6475214 (Version 12)
Quarter: 2014Q1

REPORT INFORMATION
  Report Type: Spontaneous
  Country: GB (occurrence: GB)
  Receive Date: 20071127
  Receipt Date: 20140122
  Transmission Date: 20141002
  Serious: Yes (Life-Threatening, Other)
  Sender: FDA-Public Use
  Company Number: GB-PFIZER INC-GB-WYE-G00628807

PATIENT
  Age: 19 Year
  Sex: Female
  Weight: 62 kg

DRUGS (14)
  1. TAZOCIN [Suspect]
     Dosage: 4.5 MG, 3X/DAY
     Route: 042
  2. KETALAR [Suspect]
     Indication: PAIN
     Dosage: 6 ML/ HR
     Route: 042
     Dates: start: 20070921, end: 20070928
  3. NORETHISTERONE [Suspect]
     Dosage: 5 MG, 3X/DAY
     Route: 048
  4. VORICONAZOLE [Suspect]
     Dosage: 200 MG, 2X/DAY
     Route: 048
  5. ONDANSETRON HCL [Suspect]
     Dosage: 8 MG, 3X/DAY
     Route: 042
  6. OMEPRAZOLE [Suspect]
     Dosage: UNK
     Route: 065
  7. PARACETAMOL [Suspect]
     Dosage: UNK
     Route: 042
  8. ACICLOVIR [Suspect]
     Dosage: UNK
     Route: 065
  9. ALLOPURINOL [Suspect]
     Dosage: 300 MG, DAILY
     Route: 048
  10. CASPOFUNGIN ACETATE [Suspect]
     Dosage: 70 MG, DAILY
     Route: 042
  11. CHLORPHENAMINE [Suspect]
     Dosage: 10 MG, 4X/DAY
     Route: 042
  12. CYCLOSPORINE [Suspect]
     Dosage: UNK
     Route: 065
  13. ETOPOPHOS [Suspect]
     Dosage: 4650 MG, DAILY
     Route: 042
     Dates: start: 20070915, end: 20070915
  14. MORPHINE [Suspect]
     Dosage: UNK
     Route: 042

REACTIONS (6)
  - Hepatotoxicity [Unknown]
  - Dilatation intrahepatic duct acquired [Unknown]
  - Venoocclusive liver disease [Unknown]
  - Blood bilirubin increased [Unknown]
  - Alanine aminotransferase increased [Unknown]
  - Blood alkaline phosphatase increased [Unknown]
